FAERS Safety Report 13380841 (Version 1)
Quarter: 2017Q1

REPORT INFORMATION
  Report Type: Report from Study
  Country: CZ (occurrence: CZ)
  Receive Date: 20170329
  Receipt Date: 20170329
  Transmission Date: 20170429
  Serious: Yes (Hospitalization)
  Sender: FDA-Public Use
  Company Number: CZ-UCBSA-2017011278

PATIENT
  Age: 69 Year
  Sex: Female

DRUGS (1)
  1. CERTOLIZUMAB PEGOL [Suspect]
     Active Substance: CERTOLIZUMAB PEGOL
     Indication: RHEUMATOID ARTHRITIS
     Dosage: 200 MG, EV 2 WEEKS(QOW)
     Route: 058
     Dates: start: 20110914, end: 20161014

REACTIONS (2)
  - Pseudomembranous colitis [Unknown]
  - Malnutrition [Unknown]

NARRATIVE: CASE EVENT DATE: 20150106
